FAERS Safety Report 25114676 (Version 1)
Quarter: 2025Q1

REPORT INFORMATION
  Report Type: Spontaneous
  Country: CN (occurrence: CN)
  Receive Date: 20250324
  Receipt Date: 20250324
  Transmission Date: 20250409
  Serious: Yes (Other)
  Sender: GLAXOSMITHKLINE
  Company Number: CN-GSK-CN2025APC032395

PATIENT

DRUGS (1)
  1. SERETIDE [Suspect]
     Active Substance: FLUTICASONE PROPIONATE\SALMETEROL XINAFOATE
     Indication: Product used for unknown indication
     Route: 055

REACTIONS (6)
  - Immobile [Unknown]
  - Cough [Unknown]
  - Headache [Unknown]
  - Wheezing [Unknown]
  - Wrong technique in device usage process [Unknown]
  - Product complaint [Unknown]
